FAERS Safety Report 16478689 (Version 1)
Quarter: 2019Q2

REPORT INFORMATION
  Report Type: Spontaneous
  Country: US (occurrence: US)
  Receive Date: 20190626
  Receipt Date: 20190626
  Transmission Date: 20190711
  Serious: No
  Sender: FDA-Public Use
  Company Number: US-PFIZER INC-2019272145

PATIENT
  Age: 56 Year
  Sex: Female

DRUGS (1)
  1. GENOTROPIN [Suspect]
     Active Substance: SOMATROPIN
     Indication: SEIZURE
     Dosage: 1 MG, DAILY
     Dates: start: 201106

REACTIONS (4)
  - Expired device used [Unknown]
  - Drug effective for unapproved indication [Unknown]
  - Off label use [Unknown]
  - Wrong technique in device usage process [Unknown]
